FAERS Safety Report 9105756 (Version 1)
Quarter: 2013Q1

REPORT INFORMATION
  Report Type: Spontaneous
  Country: US (occurrence: US)
  Receive Date: 20130220
  Receipt Date: 20130220
  Transmission Date: 20140127
  Serious: Yes (Other)
  Sender: FDA-Public Use
  Company Number: PHHY2013US015274

PATIENT
  Age: 56 Year
  Sex: Male

DRUGS (3)
  1. TOBRAMYCIN [Suspect]
  2. CEFEPIME HYDROCHLORIDE [Concomitant]
     Route: 042
  3. CEFTAZIDIME [Concomitant]

REACTIONS (2)
  - VIth nerve paralysis [Not Recovered/Not Resolved]
  - Deafness [Unknown]
